FAERS Safety Report 10228891 (Version 1)
Quarter: 2014Q2

REPORT INFORMATION
  Report Type: Report from Study
  Country: US (occurrence: US)
  Receive Date: 20140610
  Receipt Date: 20140610
  Transmission Date: 20141212
  Serious: Yes (Life-Threatening, Hospitalization, Other)
  Sender: FDA-Public Use
  Company Number: US-ABBVIE-14P-163-1245560-00

PATIENT
  Age: 66 Year
  Sex: Male
  Weight: 168.89 kg

DRUGS (6)
  1. HUMIRA [Suspect]
     Indication: PSORIASIS
     Route: 058
     Dates: start: 20110922, end: 20110922
  2. HUMIRA [Suspect]
     Route: 058
     Dates: start: 20110929, end: 20120825
  3. VANOS [Concomitant]
     Indication: PSORIASIS
     Dates: start: 20110811
  4. TMC [Concomitant]
     Indication: PSORIASIS
     Dates: start: 20110811
  5. VOLTAREN [Concomitant]
     Indication: PSORIATIC ARTHROPATHY
     Dates: start: 20120904, end: 20130204
  6. ATARAX [Concomitant]
     Indication: PSORIASIS
     Dosage: BEDTIME
     Dates: start: 20111120

REACTIONS (2)
  - Coronary artery disease [Recovered/Resolved]
  - Ventricular fibrillation [Recovered/Resolved]
